FAERS Safety Report 12490399 (Version 3)
Quarter: 2016Q3

REPORT INFORMATION
  Report Type: Report from Study
  Country: JP (occurrence: JP)
  Receive Date: 20160622
  Receipt Date: 20160908
  Transmission Date: 20161109
  Serious: Yes (Other)
  Sender: FDA-Public Use
  Company Number: PHJP2016JP016634

PATIENT
  Age: 43 Year
  Sex: Female
  Weight: 65.4 kg

DRUGS (3)
  1. CELECOX [Concomitant]
     Active Substance: CELECOXIB
     Indication: ANKYLOSING SPONDYLITIS
     Dosage: 50 MG, BID
     Route: 048
     Dates: start: 20150811
  2. AIN457 [Suspect]
     Active Substance: SECUKINUMAB
     Dosage: 150 MG/ML, UNK
     Route: 058
     Dates: start: 20160530, end: 20160530
  3. AIN457 [Suspect]
     Active Substance: SECUKINUMAB
     Indication: ANKYLOSING SPONDYLITIS
     Dosage: 150 MG/ML, UNK (WEEK 0 TO 4)
     Route: 058
     Dates: start: 20160405, end: 20160502

REACTIONS (1)
  - Drug eruption [Recovering/Resolving]

NARRATIVE: CASE EVENT DATE: 20160606
